FAERS Safety Report 15333352 (Version 1)
Quarter: 2018Q3

REPORT INFORMATION
  Report Type: Spontaneous
  Country: DE (occurrence: DE)
  Receive Date: 20180830
  Receipt Date: 20180830
  Transmission Date: 20181010
  Serious: Yes (Death, Hospitalization)
  Sender: FDA-Public Use
  Company Number: DE-HIKMA PHARMACEUTICALS USA INC.-DE-H14001-18-07052

PATIENT
  Age: 71 Year
  Sex: Female
  Weight: 66 kg

DRUGS (22)
  1. CAPECITABINE. [Suspect]
     Active Substance: CAPECITABINE
     Dosage: ()
     Route: 048
     Dates: start: 20141013
  2. CAPECITABINE. [Suspect]
     Active Substance: CAPECITABINE
     Dosage: ()
     Route: 048
     Dates: start: 20131228, end: 20140110
  3. BEVACIZUMAB. [Suspect]
     Active Substance: BEVACIZUMAB
     Indication: BREAST CANCER
     Dosage: DAILY DOSE: 1000 MG MILLIGRAM(S) EVERY 3 WEEK
     Route: 042
     Dates: start: 20131021, end: 20131021
  4. TORASEMID [Concomitant]
     Active Substance: TORSEMIDE
     Indication: HYPERTENSION
     Dosage: ()
     Route: 048
     Dates: start: 1998
  5. CAPECITABINE. [Suspect]
     Active Substance: CAPECITABINE
     Dosage: ()
     Route: 048
     Dates: start: 20140331, end: 20140413
  6. CAPECITABINE. [Suspect]
     Active Substance: CAPECITABINE
     Dosage: ()
     Route: 048
     Dates: start: 20140303, end: 20140316
  7. CAPECITABINE. [Suspect]
     Active Substance: CAPECITABINE
     Dosage: ()
     Route: 048
     Dates: start: 20131021, end: 20131103
  8. CAPECITABINE. [Suspect]
     Active Substance: CAPECITABINE
     Indication: BREAST CANCER
     Dosage: ()
     Route: 048
     Dates: start: 20140422, end: 20140505
  9. CAPECITABINE. [Suspect]
     Active Substance: CAPECITABINE
     Dosage: ()
     Route: 048
     Dates: start: 20131203, end: 20131216
  10. CAPECITABINE. [Suspect]
     Active Substance: CAPECITABINE
     Dosage: ()
     Route: 048
     Dates: start: 20140625, end: 20140709
  11. GRANISETRON [Concomitant]
     Active Substance: GRANISETRON
     Indication: NAUSEA
     Dosage: CYCLICAL
     Route: 042
     Dates: start: 20131021
  12. CAPECITABINE. [Suspect]
     Active Substance: CAPECITABINE
     Dosage: ()
     Route: 048
     Dates: start: 20140827, end: 20140909
  13. CAPECITABINE. [Suspect]
     Active Substance: CAPECITABINE
     Dosage: ()
     Route: 048
     Dates: start: 20140513, end: 20140526
  14. CAPECITABINE. [Suspect]
     Active Substance: CAPECITABINE
     Dosage: ()
     Route: 048
     Dates: start: 20140604, end: 20140617
  15. AMBROXOL [Concomitant]
     Active Substance: AMBROXOL
     Indication: COUGH
     Route: 048
  16. CAPECITABINE. [Suspect]
     Active Substance: CAPECITABINE
     Dosage: ()
     Route: 048
     Dates: start: 20140918, end: 20141001
  17. CAPECITABINE. [Suspect]
     Active Substance: CAPECITABINE
     Dosage: ()
     Route: 048
     Dates: start: 20140804, end: 20140817
  18. CAPECITABINE. [Suspect]
     Active Substance: CAPECITABINE
     Dosage: ()
     Route: 048
     Dates: start: 20131111, end: 20131124
  19. CAPECITABINE. [Suspect]
     Active Substance: CAPECITABINE
     Dosage: ()
     Route: 048
     Dates: start: 20140715, end: 20140728
  20. BEVACIZUMAB. [Suspect]
     Active Substance: BEVACIZUMAB
     Dosage: DAILY DOSE: 900 MG MILLIGRAM(S) EVERY 3 WEEK
     Route: 042
     Dates: start: 20141013, end: 20141013
  21. SIMVASTATIN. [Concomitant]
     Active Substance: SIMVASTATIN
     Indication: HYPERCHOLESTEROLAEMIA
     Dosage: ()
     Route: 048
  22. MACROGOL [Concomitant]
     Active Substance: POLYETHYLENE GLYCOLS
     Indication: CONSTIPATION
     Route: 048

REACTIONS (2)
  - Constipation [Not Recovered/Not Resolved]
  - Diverticulum intestinal [Fatal]

NARRATIVE: CASE EVENT DATE: 20150203
